FAERS Safety Report 12892717 (Version 1)
Quarter: 2016Q4

REPORT INFORMATION
  Report Type: Spontaneous
  Country: US (occurrence: US)
  Receive Date: 20161028
  Receipt Date: 20161028
  Transmission Date: 20170207
  Serious: Yes (Hospitalization)
  Sender: FDA-Public Use
  Company Number: None

PATIENT
  Age: 56 Year
  Sex: Male
  Weight: 82.2 kg

DRUGS (10)
  1. SUCC [Concomitant]
  2. ROBINOL [Concomitant]
  3. PHENYL [Concomitant]
  4. LABETOLOL [Concomitant]
     Active Substance: LABETALOL HYDROCHLORIDE
  5. FENTANYL. [Suspect]
     Active Substance: FENTANYL
     Indication: SURGERY
     Dosage: 600MCG DURING PROCEDURE IV
     Route: 042
  6. NEOSTIGMINE [Concomitant]
     Active Substance: NEOSTIGMINE
  7. ZOFRAN [Concomitant]
     Active Substance: ONDANSETRON HYDROCHLORIDE
  8. ANCEF [Concomitant]
     Active Substance: CEFAZOLIN SODIUM
  9. PROPOFOL. [Concomitant]
     Active Substance: PROPOFOL
  10. ROCURONIUM [Concomitant]
     Active Substance: ROCURONIUM BROMIDE

REACTIONS (4)
  - Oxygen saturation decreased [None]
  - Somnolence [None]
  - Depressed level of consciousness [None]
  - Hypercapnia [None]

NARRATIVE: CASE EVENT DATE: 20150409
